FAERS Safety Report 24741079 (Version 2)
Quarter: 2025Q2

REPORT INFORMATION
  Report Type: Spontaneous
  Country: US (occurrence: US)
  Receive Date: 20241217
  Receipt Date: 20250403
  Transmission Date: 20250716
  Serious: No
  Sender: ABBVIE
  Company Number: US-ABBVIE-6046925

PATIENT
  Age: 36 Year

DRUGS (1)
  1. LILETTA [Suspect]
     Active Substance: LEVONORGESTREL
     Indication: Product used for unknown indication
     Route: 015

REACTIONS (2)
  - Unintentional medical device removal [Unknown]
  - Embedded device [Unknown]

NARRATIVE: CASE EVENT DATE: 20241028
